FAERS Safety Report 10566352 (Version 1)
Quarter: 2014Q4

REPORT INFORMATION
  Report Type: Spontaneous
  Country: GB (occurrence: GB)
  Receive Date: 20141105
  Receipt Date: 20141105
  Transmission Date: 20150529
  Serious: Yes (Life-Threatening)
  Sender: FDA-Public Use
  Company Number: GB-TEVA-519676ISR

PATIENT
  Age: 86 Year
  Sex: Female

DRUGS (12)
  1. COLCHICINE. [Suspect]
     Active Substance: COLCHICINE
     Indication: GOUT
     Dosage: 1000 MICROGRAM DAILY;
     Route: 048
     Dates: start: 20140919, end: 20140922
  2. CODEINE [Concomitant]
     Active Substance: CODEINE
     Dosage: 30 MILLIGRAM DAILY;
     Dates: start: 20140914, end: 20140917
  3. OMEPRAZOLE. [Concomitant]
     Active Substance: OMEPRAZOLE
     Dosage: 20 MILLIGRAM DAILY;
     Dates: start: 20140917, end: 20140928
  4. CYCLIZINE [Concomitant]
     Active Substance: CYCLIZINE
  5. CLARITHROMYCIN. [Suspect]
     Active Substance: CLARITHROMYCIN
     Indication: LUNG ABSCESS
     Route: 048
     Dates: start: 20140917
  6. ASPIRIN. [Concomitant]
     Active Substance: ASPIRIN
     Dosage: 75 MILLIGRAM DAILY;
  7. IBUPROFEN. [Concomitant]
     Active Substance: IBUPROFEN
     Dosage: 1200 MILLIGRAM DAILY;
     Dates: start: 20140923, end: 20141001
  8. CO-AMOXICLAV [Concomitant]
     Active Substance: AMOXICILLIN\CLAVULANIC ACID
     Dosage: 1875 MILLIGRAM DAILY;
     Dates: start: 20140906, end: 20140916
  9. ENOXAPARIN [Concomitant]
     Active Substance: ENOXAPARIN
     Dosage: 200 MILLIGRAM DAILY;
     Dates: start: 20140906, end: 20140914
  10. LEVOTHYROXINE [Concomitant]
     Active Substance: LEVOTHYROXINE
     Dosage: 400 MICROGRAM DAILY;
  11. NICORANDIL [Concomitant]
     Active Substance: NICORANDIL
     Dosage: 20 MILLIGRAM DAILY;
  12. PARACETAMOL [Concomitant]
     Active Substance: ACETAMINOPHEN
     Dosage: 4 GRAM DAILY;
     Dates: start: 20140914, end: 20140917

REACTIONS (2)
  - Pancytopenia [Recovered/Resolved]
  - Diarrhoea [Recovered/Resolved]

NARRATIVE: CASE EVENT DATE: 20140922
